FAERS Safety Report 4957305-5 (Version None)
Quarter: 2006Q1

REPORT INFORMATION
  Report Type: 
  Country: None (occurrence: None)
  Receive Date: 20060323
  Receipt Date: 20060315
  Transmission Date: 20060701
  Serious: Yes (Death, Other)
  Sender: FDA-Public Use
  Company Number: 2006-01009

PATIENT
  Age: 40 Year
  Sex: Female

DRUGS (3)
  1. LORAZEPAM [Suspect]
     Indication: ANXIETY
     Dosage: PRN, ORAL
     Route: 048
     Dates: start: 20050101, end: 20060301
  2. LORAZEPAM [Suspect]
     Indication: ANXIETY
     Dosage: PRN, ORAL
     Route: 048
     Dates: start: 20050101, end: 20060301
  3. UNSP. HYPERTENSION MEDICATIONS [Concomitant]

REACTIONS (4)
  - DRUG WITHDRAWAL SYNDROME [None]
  - HEPATIC CIRRHOSIS [None]
  - INJURY [None]
  - LEGAL PROBLEM [None]
